FAERS Safety Report 19972826 (Version 1)
Quarter: 2021Q4

REPORT INFORMATION
  Report Type: Spontaneous
  Country: US (occurrence: US)
  Receive Date: 20211019
  Receipt Date: 20211019
  Transmission Date: 20220304
  Serious: Yes (Other)
  Sender: FDA-Public Use
  Company Number: None

PATIENT
  Sex: Male

DRUGS (2)
  1. ALENDRONATE SODIUM [Suspect]
     Active Substance: ALENDRONATE SODIUM
  2. IBANDRONATE SODIUM [Suspect]
     Active Substance: IBANDRONATE SODIUM

REACTIONS (2)
  - Therapy non-responder [None]
  - Adverse drug reaction [None]
